FAERS Safety Report 9203134 (Version 1)
Quarter: 2013Q1

REPORT INFORMATION
  Report Type: Spontaneous
  Country: IT (occurrence: None)
  Receive Date: 20130328
  Receipt Date: 20130328
  Transmission Date: 20140127
  Serious: Yes (Hospitalization)
  Sender: FDA-Public Use
  Company Number: 2013-05255

PATIENT
  Age: 85 Year
  Sex: Female
  Weight: 50 kg

DRUGS (2)
  1. GEMCITABINE [Suspect]
     Indication: NON-HODGKIN^S LYMPHOMA
     Route: 040
     Dates: start: 20130118, end: 20130119
  2. OXALIPLATIN [Suspect]
     Indication: NON-HODGKIN^S LYMPHOMA
     Route: 040
     Dates: start: 20130118, end: 20130119

REACTIONS (3)
  - Disorientation [None]
  - Bradykinesia [None]
  - Bradyphrenia [None]
